FAERS Safety Report 13151664 (Version 1)
Quarter: 2017Q1

REPORT INFORMATION
  Report Type: Spontaneous
  Country: US (occurrence: US)
  Receive Date: 20170125
  Receipt Date: 20170125
  Transmission Date: 20170428
  Serious: No
  Sender: FDA-Public Use
  Company Number: US-BAYER-2017-011344

PATIENT
  Age: 44 Year
  Sex: Female
  Weight: 68.4 kg

DRUGS (1)
  1. MIRENA [Suspect]
     Active Substance: LEVONORGESTREL
     Indication: CONTRACEPTION
     Dosage: 20 MCG/24HR, CONT
     Route: 015
     Dates: start: 20160718

REACTIONS (8)
  - Musculoskeletal pain [Not Recovered/Not Resolved]
  - Paraesthesia [None]
  - Muscle spasms [Not Recovered/Not Resolved]
  - Paranoia [Not Recovered/Not Resolved]
  - Vaginal odour [Not Recovered/Not Resolved]
  - Arthralgia [Not Recovered/Not Resolved]
  - Weight increased [Not Recovered/Not Resolved]
  - Pruritus [Not Recovered/Not Resolved]

NARRATIVE: CASE EVENT DATE: 20160718
